FAERS Safety Report 16092708 (Version 1)
Quarter: 2019Q1

REPORT INFORMATION
  Report Type: Spontaneous
  Country: US (occurrence: US)
  Receive Date: 20190319
  Receipt Date: 20190319
  Transmission Date: 20190418
  Serious: No
  Sender: FDA-Public Use
  Company Number: US-ASTRAZENECA-2019SE29412

PATIENT
  Sex: Female
  Weight: 68 kg

DRUGS (5)
  1. CELEBREX [Suspect]
     Active Substance: CELECOXIB
     Indication: ARTHRITIS
     Dosage: AS NEEDED UNKNOWN
     Route: 048
  2. DAYPRO [Suspect]
     Active Substance: OXAPROZIN
     Dosage: UNKNOWN
     Route: 065
  3. CRESTOR [Suspect]
     Active Substance: ROSUVASTATIN CALCIUM
     Dosage: UNKNOWN
     Route: 048
  4. CELEBREX [Suspect]
     Active Substance: CELECOXIB
     Indication: ARTHRITIS
     Dosage: 200.0MG UNKNOWN
     Route: 048
  5. ATIVAN [Concomitant]
     Active Substance: LORAZEPAM
     Dosage: AS NEEDED (GENERIC) HALF ONE AT NIGHT OR WHOLE AT NIGHT.
     Route: 048

REACTIONS (4)
  - Bone pain [Unknown]
  - Pain [Unknown]
  - Myalgia [Unknown]
  - Abdominal discomfort [Unknown]
